FAERS Safety Report 5660178-9 (Version None)
Quarter: 2008Q1

REPORT INFORMATION
  Report Type: 
  Country: None (occurrence: None)
  Receive Date: 20080212
  Receipt Date: 20070313
  Transmission Date: 20080703
  Serious: Yes (Life-Threatening, Hospitalization)
  Sender: FDA-Public Use
  Company Number: MC200700186

PATIENT
  Age: 77 Year
  Sex: Female
  Weight: 68 kg

DRUGS (9)
  1. ANGIOMAX [Suspect]
     Indication: ANTICOAGULANT THERAPY
     Dosage: 10.5 ML, BOLUS, IV BOLUS; 24.5 ML. HR, INTRAVENOUS
     Route: 040
     Dates: start: 20070227, end: 20070227
  2. ANGIOMAX [Suspect]
     Indication: ANTICOAGULANT THERAPY
     Dosage: 10.5 ML, BOLUS, IV BOLUS; 24.5 ML. HR, INTRAVENOUS
     Route: 040
     Dates: start: 20070227, end: 20070227
  3. INVESTIGATIONAL DRUG() [Suspect]
     Indication: PERCUTANEOUS CORONARY INTERVENTION
     Dosage: 5 ML, BOLUS, IV BOLUS; 85.76 MI, SINGLE, INTRAVENOUS
     Route: 040
     Dates: start: 20070227, end: 20070227
  4. INVESTIGATIONAL DRUG() [Suspect]
     Indication: PERCUTANEOUS CORONARY INTERVENTION
     Dosage: 5 ML, BOLUS, IV BOLUS; 85.76 MI, SINGLE, INTRAVENOUS
     Route: 040
     Dates: start: 20070227, end: 20070227
  5. CLOPIDOGREL [Suspect]
     Indication: PERCUTANEOUS CORONARY INTERVENTION
     Dosage: 4 CAPSULES, SINGLE, ORAL
     Route: 048
     Dates: start: 20070227, end: 20070227
  6. ASPIRIN [Suspect]
     Indication: ANTICOAGULANT THERAPY
     Dosage: 324 MG, SINGLE, ORAL
     Route: 048
     Dates: start: 20070227, end: 20070227
  7. HEPARIN [Suspect]
     Indication: ANTICOAGULANT THERAPY
     Dosage: 5000 UT, BOLUS, INTRAVENOUS; 1000 LU, HR, INTRAVENOUS
     Route: 040
     Dates: start: 20070227, end: 20070227
  8. HEPARIN [Suspect]
     Indication: ANTICOAGULANT THERAPY
     Dosage: 5000 UT, BOLUS, INTRAVENOUS; 1000 LU, HR, INTRAVENOUS
     Route: 040
     Dates: start: 20070227, end: 20070227
  9. INTROPASTE (GLYCERYL TRINITRATE) [Concomitant]

REACTIONS (1)
  - GASTROINTESTINAL HAEMORRHAGE [None]
